FAERS Safety Report 13005037 (Version 1)
Quarter: 2016Q4

REPORT INFORMATION
  Report Type: Spontaneous
  Country: US (occurrence: US)
  Receive Date: 20161207
  Receipt Date: 20161207
  Transmission Date: 20170207
  Serious: Yes (Other)
  Sender: FDA-Public Use
  Company Number: US-PFIZER INC-2016559927

PATIENT
  Age: 4 Decade
  Sex: Female

DRUGS (1)
  1. LYRICA [Suspect]
     Active Substance: PREGABALIN
     Indication: BIPOLAR I DISORDER
     Dosage: 150 MG, DAILY

REACTIONS (2)
  - Suicidal ideation [Unknown]
  - Product use issue [Unknown]
